FAERS Safety Report 8967045 (Version 3)
Quarter: 2013Q2

REPORT INFORMATION
  Report Type: Spontaneous
  Country: FI (occurrence: FI)
  Receive Date: 20121214
  Receipt Date: 20130426
  Transmission Date: 20140414
  Serious: Yes (Hospitalization)
  Sender: FDA-Public Use
  Company Number: FI-ABBOTT-12P-055-1019977-00

PATIENT
  Age: 67 Year
  Sex: Male

DRUGS (1)
  1. HUMIRA [Suspect]
     Indication: PSORIASIS
     Dates: start: 200904, end: 201209

REACTIONS (6)
  - Renal failure [Not Recovered/Not Resolved]
  - Cardiac failure [Unknown]
  - C-reactive protein increased [Unknown]
  - Device related sepsis [Recovered/Resolved]
  - Dyspnoea [Unknown]
  - Pulmonary embolism [Unknown]
